FAERS Safety Report 11567049 (Version 5)
Quarter: 2015Q4

REPORT INFORMATION
  Report Type: Report from Study
  Country: US (occurrence: US)
  Receive Date: 20150929
  Receipt Date: 20151130
  Transmission Date: 20160304
  Serious: Yes (Hospitalization, Other)
  Sender: FDA-Public Use
  Company Number: US-AMGEN-USASP2015095839

PATIENT
  Age: 77 Year
  Sex: Male

DRUGS (13)
  1. BLINCYTO [Suspect]
     Active Substance: BLINATUMOMAB
     Indication: ACUTE LYMPHOCYTIC LEUKAEMIA RECURRENT
     Dosage: UNK
     Route: 042
     Dates: start: 20150908
  2. BENICAR [Concomitant]
     Active Substance: OLMESARTAN MEDOXOMIL
     Indication: HYPERTENSION
     Dosage: 40 MG, QD
     Route: 048
  3. ZYLOPRIM [Concomitant]
     Active Substance: ALLOPURINOL
     Dosage: 1 TAB (400 MG) DAILY
  4. DIFLUCAN [Concomitant]
     Active Substance: FLUCONAZOLE
     Indication: PROPHYLAXIS
     Dosage: 200 MG, QD
  5. ANTIVERT                           /00007101/ [Concomitant]
     Dosage: UNK
  6. PRILOSEC [Concomitant]
     Active Substance: OMEPRAZOLE MAGNESIUM
     Dosage: 20 MG, QD
  7. TOPROL XL [Concomitant]
     Active Substance: METOPROLOL SUCCINATE
     Dosage: 100 MG, QD
     Route: 048
  8. FISH OIL [Concomitant]
     Active Substance: FISH OIL
     Dosage: 1200 MG, UNK
     Route: 048
  9. MULTIVITAMINS [Concomitant]
     Active Substance: VITAMINS
     Dosage: UNK
     Route: 048
  10. ZOVIRAX [Concomitant]
     Active Substance: ACYCLOVIR
     Dosage: 2 CAPSULE (400 MG) EVERY 12 HOURS
  11. PRAVACHOL [Concomitant]
     Active Substance: PRAVASTATIN SODIUM
     Dosage: 80 MG, QHS
     Route: 048
  12. COZAAR [Concomitant]
     Active Substance: LOSARTAN POTASSIUM
     Dosage: 100 MG, QD
  13. DESYREL [Concomitant]
     Active Substance: TRAZODONE HYDROCHLORIDE
     Indication: SLEEP DISORDER

REACTIONS (27)
  - Enterococcal infection [Unknown]
  - Fatigue [Unknown]
  - Pyrexia [Not Recovered/Not Resolved]
  - Neuropathy peripheral [Unknown]
  - Mobility decreased [Unknown]
  - Arthralgia [Unknown]
  - Diarrhoea [Recovering/Resolving]
  - Mental status changes [Recovered/Resolved]
  - Neutropenic sepsis [Unknown]
  - Cardiac disorder [Unknown]
  - Haematological malignancy [Unknown]
  - Pain [Unknown]
  - Clostridium difficile infection [Unknown]
  - Asthenia [Unknown]
  - Proctitis [Unknown]
  - Disorientation [Unknown]
  - Heart rate increased [Unknown]
  - Troponin increased [Unknown]
  - Pleural effusion [Unknown]
  - Unresponsive to stimuli [Unknown]
  - Pancytopenia [Unknown]
  - Heart rate decreased [Unknown]
  - Ejection fraction decreased [Unknown]
  - Pulmonary oedema [Unknown]
  - Oxygen saturation abnormal [Unknown]
  - Dyspnoea [Not Recovered/Not Resolved]
  - Neurotoxicity [Unknown]

NARRATIVE: CASE EVENT DATE: 20150908
